FAERS Safety Report 5277669-5 (Version None)
Quarter: 2007Q1

REPORT INFORMATION
  Report Type: 
  Country: None (occurrence: None)
  Receive Date: 20061213
  Receipt Date: 20060116
  Transmission Date: 20070707
  Serious: Yes (Other)
  Sender: FDA-Public Use
  Company Number: 2005UW17060

PATIENT

DRUGS (3)
  1. SEROQUEL [Suspect]
     Dosage: 50 MG QD PO
     Route: 048
     Dates: start: 20050819
  2. SINEQUAN [Suspect]
     Dosage: 50 MG
  3. SINEQUAN [Suspect]
     Dosage: 100 MG
     Dates: start: 20050820, end: 20050822

REACTIONS (2)
  - MEDICATION ERROR [None]
  - SOMNOLENCE [None]
